FAERS Safety Report 5925217-6 (Version None)
Quarter: 2008Q4

REPORT INFORMATION
  Report Type: 
  Country: None (occurrence: None)
  Receive Date: 20081020
  Receipt Date: 20081020
  Transmission Date: 20090506
  Serious: Yes (Hospitalization)
  Sender: FDA-Public Use
  Company Number: None

PATIENT
  Age: 24 Year
  Sex: Female
  Weight: 64 kg

DRUGS (3)
  1. EPIVIR [Suspect]
     Indication: HIV INFECTION
     Dosage: 150 MG BID PO
     Route: 048
     Dates: start: 20051223
  2. KALETRA [Suspect]
     Indication: HIV INFECTION
     Dosage: 133.3/33.3 MG BID PO
     Route: 048
     Dates: start: 20060413
  3. RETROVIR [Suspect]
     Indication: HIV INFECTION
     Dosage: 300 MG BID PO
     Route: 048
     Dates: start: 20061025

REACTIONS (14)
  - ABORTION MISSED [None]
  - ABORTION SPONTANEOUS [None]
  - ALANINE AMINOTRANSFERASE INCREASED [None]
  - ASPARTATE AMINOTRANSFERASE INCREASED [None]
  - BLIGHTED OVUM [None]
  - BLOOD CREATININE DECREASED [None]
  - BODY TEMPERATURE DECREASED [None]
  - DRUG EXPOSURE DURING PREGNANCY [None]
  - GAMMA-GLUTAMYLTRANSFERASE INCREASED [None]
  - HAEMATOCRIT DECREASED [None]
  - HYPERLACTACIDAEMIA [None]
  - PREGNANCY [None]
  - RED BLOOD CELL COUNT DECREASED [None]
  - SEXUALLY TRANSMITTED DISEASE [None]
